FAERS Safety Report 7928504-5 (Version None)
Quarter: 2011Q4

REPORT INFORMATION
  Report Type: 
  Country: None (occurrence: None)
  Receive Date: 20111118
  Receipt Date: 20111108
  Transmission Date: 20120403
  Serious: Yes (Death, Other)
  Sender: FDA-Public Use
  Company Number: FR-ELI_LILLY_AND_COMPANY-FR97106292A

PATIENT
  Age: 27 Year
  Sex: Male

DRUGS (2)
  1. METHYLTESTOSTERONE [Concomitant]
     Dosage: UNK, UNKNOWN
     Route: 048
  2. PROZAC [Suspect]
     Indication: DEPRESSION
     Dosage: UNK, UNKNOWN
     Route: 048

REACTIONS (4)
  - HOMICIDE [None]
  - COMPLETED SUICIDE [None]
  - DRUG ABUSE [None]
  - DELUSION [None]
